FAERS Safety Report 9312778 (Version 1)
Quarter: 2013Q2

REPORT INFORMATION
  Report Type: Spontaneous
  Country: NL (occurrence: NL)
  Receive Date: 20130528
  Receipt Date: 20130528
  Transmission Date: 20140414
  Serious: Yes (Hospitalization)
  Sender: FDA-Public Use
  Company Number: NL-009507513-1305NLD014717

PATIENT
  Age: 83 Year
  Sex: Male

DRUGS (7)
  1. TRYPTIZOL [Suspect]
     Indication: HERPES ZOSTER
     Dosage: 50 MG, BID
     Dates: start: 201304, end: 20130421
  2. ACYCLOVIR [Interacting]
     Indication: HERPES ZOSTER
     Dosage: 800 MG, Q5H
     Dates: start: 201304, end: 20130421
  3. SPIRIVA HANDIHALER [Concomitant]
     Dosage: 18 MICROGRAM, QD
  4. ASCAL CARDIO [Concomitant]
     Dosage: 100 MG, QD
  5. PERINDOPRIL [Concomitant]
     Dosage: 8 MG, QD
  6. BISOPROLOL [Concomitant]
     Dosage: 2.5 MG, QD
  7. HYDROCHLOORTHIAZIDE [Concomitant]
     Dosage: 12.5 MG, QD

REACTIONS (2)
  - Delirium [Recovered/Resolved]
  - Dry mouth [Recovered/Resolved]
